FAERS Safety Report 11685086 (Version 12)
Quarter: 2019Q2

REPORT INFORMATION
  Report Type: Spontaneous
  Country: US (occurrence: US)
  Receive Date: 20151030
  Receipt Date: 20190611
  Transmission Date: 20190711
  Serious: Yes (Other)
  Sender: FDA-Public Use
  Company Number: PHEH2015US021855

PATIENT
  Age: 25 Year
  Sex: Female
  Weight: 92.63 kg

DRUGS (3)
  1. ONDANSETRON HYDROCHLORIDE. [Suspect]
     Active Substance: ONDANSETRON HYDROCHLORIDE
     Indication: PRODUCT USED FOR UNKNOWN INDICATION
     Route: 048
  2. ZOFRAN [Suspect]
     Active Substance: ONDANSETRON HYDROCHLORIDE
     Indication: MORNING SICKNESS
     Route: 048
  3. ONDANSETRON DR REDDY [Suspect]
     Active Substance: ONDANSETRON
     Indication: MORNING SICKNESS
     Dosage: 4 MG, UNK
     Route: 065
     Dates: start: 20140105

REACTIONS (15)
  - Cough [Unknown]
  - Nasopharyngitis [Unknown]
  - Anxiety [Unknown]
  - Premature delivery [Unknown]
  - Chills [Unknown]
  - Gestational diabetes [Unknown]
  - Maternal exposure during pregnancy [Unknown]
  - Emotional distress [Unknown]
  - Product use in unapproved indication [Unknown]
  - Pain [Unknown]
  - Dyspnoea [Unknown]
  - Upper respiratory tract infection [Unknown]
  - Headache [Unknown]
  - Premature rupture of membranes [Unknown]
  - Pyrexia [Unknown]

NARRATIVE: CASE EVENT DATE: 20140811
